FAERS Safety Report 9089529 (Version 1)
Quarter: 2013Q1

REPORT INFORMATION
  Report Type: Spontaneous
  Country: US (occurrence: US)
  Receive Date: 20130201
  Receipt Date: 20130201
  Transmission Date: 20140127
  Serious: No
  Sender: FDA-Public Use
  Company Number: US-ABBOTT-12P-163-1019800-00

PATIENT
  Age: 17 Year
  Sex: Male

DRUGS (3)
  1. HUMIRA [Suspect]
     Indication: CROHN^S DISEASE
     Route: 058
     Dates: start: 20121116, end: 20121116
  2. HUMIRA [Suspect]
     Route: 058
     Dates: start: 20121130, end: 20121130
  3. HUMIRA [Suspect]
     Route: 058

REACTIONS (1)
  - Influenza [Unknown]
